FAERS Safety Report 17240352 (Version 1)
Quarter: 2020Q1

REPORT INFORMATION
  Report Type: Spontaneous
  Country: GB (occurrence: GB)
  Receive Date: 20200107
  Receipt Date: 20200107
  Transmission Date: 20200409
  Serious: Yes (Other)
  Sender: FDA-Public Use
  Company Number: GB-ACCORD-168886

PATIENT
  Age: 67 Year
  Sex: Female
  Weight: 70 kg

DRUGS (2)
  1. RAMIPRIL. [Suspect]
     Active Substance: RAMIPRIL
     Indication: PRODUCT USED FOR UNKNOWN INDICATION
     Dosage: IN THE EVENING.
     Dates: start: 20191125, end: 20191209
  2. FELODIPINE. [Concomitant]
     Active Substance: FELODIPINE
     Dates: start: 20190814

REACTIONS (2)
  - Fixed eruption [Recovered/Resolved]
  - Rash [Recovered/Resolved]
